FAERS Safety Report 12762051 (Version 1)
Quarter: 2016Q3

REPORT INFORMATION
  Report Type: Report from Study
  Country: CA (occurrence: CA)
  Receive Date: 20160920
  Receipt Date: 20160920
  Transmission Date: 20161109
  Serious: Yes (Hospitalization, Other)
  Sender: FDA-Public Use
  Company Number: CA-TEVA-694054ACC

PATIENT
  Age: 69 Year
  Sex: Female
  Weight: 173.7 kg

DRUGS (10)
  1. NEXIUM [Concomitant]
     Active Substance: ESOMEPRAZOLE MAGNESIUM
     Dosage: 20 MILLIGRAM DAILY; STRENGTH: 20MG
     Dates: start: 20081106
  2. AMNEAL-NAPROXEN [Interacting]
     Active Substance: NAPROXEN
     Indication: ARTHRITIS
     Route: 048
     Dates: start: 20081106, end: 20081109
  3. TYLENOL [Concomitant]
     Active Substance: ACETAMINOPHEN
     Dates: start: 20080102
  4. SENOKOT [Concomitant]
     Active Substance: SENNOSIDES
     Dates: start: 20070130
  5. DETROL LA [Concomitant]
     Active Substance: TOLTERODINE TARTRATE
     Dates: start: 20080515
  6. CARBOCAL D 400 [Concomitant]
     Dates: start: 20010921
  7. NITRO [Concomitant]
     Active Substance: NITROGLYCERIN
     Dates: start: 2004
  8. ASAPHEN [Concomitant]
     Active Substance: ASPIRIN
     Dosage: 80 MILLIGRAM DAILY; ENTERIC COATED; STRENGTH: 80MG
     Dates: start: 20040817
  9. SUMATRIPTAN SUCCINATE. [Concomitant]
     Active Substance: SUMATRIPTAN SUCCINATE
     Dates: start: 20030327
  10. CORTISONE [Suspect]
     Active Substance: CORTISONE\HYDROCORTISONE
     Indication: OSTEOARTHRITIS
     Route: 014
     Dates: start: 20081108, end: 20081108

REACTIONS (3)
  - Diarrhoea [Recovered/Resolved]
  - Colitis ischaemic [Recovered/Resolved]
  - Drug interaction [Recovered/Resolved]

NARRATIVE: CASE EVENT DATE: 20081108
